FAERS Safety Report 11456264 (Version 1)
Quarter: 2015Q3

REPORT INFORMATION
  Report Type: Report from Study
  Country: US (occurrence: US)
  Receive Date: 20150903
  Receipt Date: 20150903
  Transmission Date: 20151125
  Serious: No
  Sender: FDA-Public Use
  Company Number: GXBR2015US001895

PATIENT
  Sex: Male

DRUGS (1)
  1. OMNITROPE [Suspect]
     Active Substance: SOMATROPIN
     Indication: DWARFISM
     Dosage: 1.6 MG, QD
     Route: 065
     Dates: start: 201402

REACTIONS (1)
  - Incorrect dose administered by device [Unknown]
